FAERS Safety Report 11395289 (Version 4)
Quarter: 2015Q3

REPORT INFORMATION
  Report Type: Spontaneous
  Country: US (occurrence: US)
  Receive Date: 20150819
  Receipt Date: 20150917
  Transmission Date: 20151125
  Serious: No
  Sender: FDA-Public Use
  Company Number: US-PFIZER INC-2015266130

PATIENT
  Age: 65 Year
  Sex: Female

DRUGS (2)
  1. DYNACIRC [Suspect]
     Active Substance: ISRADIPINE
     Dosage: UNK
  2. NORVASC [Suspect]
     Active Substance: AMLODIPINE BESYLATE
     Indication: HYPERTENSION
     Dosage: 2.5 MG, 1X/DAY (QAM)
     Route: 048
     Dates: start: 20140116, end: 20140118

REACTIONS (2)
  - Drug hypersensitivity [Unknown]
  - Headache [Recovered/Resolved]

NARRATIVE: CASE EVENT DATE: 20140117
